FAERS Safety Report 9175291 (Version 1)
Quarter: 2013Q1

REPORT INFORMATION
  Report Type: Spontaneous
  Country: ES (occurrence: ES)
  Receive Date: 20130320
  Receipt Date: 20130320
  Transmission Date: 20140127
  Serious: Yes (Hospitalization)
  Sender: FDA-Public Use
  Company Number: ES-JNJFOC-20130308087

PATIENT
  Age: 16 Year
  Sex: Female

DRUGS (2)
  1. FORTASEC [Suspect]
     Indication: DIARRHOEA
     Route: 048
     Dates: start: 201302
  2. DENVAR [Suspect]
     Indication: PROPHYLAXIS
     Route: 048
     Dates: start: 201302

REACTIONS (2)
  - Pseudomembranous colitis [Unknown]
  - Medication error [Unknown]
